FAERS Safety Report 5774062-3 (Version None)
Quarter: 2008Q2

REPORT INFORMATION
  Report Type: 
  Country: None (occurrence: None)
  Receive Date: 20080616
  Receipt Date: 20080605
  Transmission Date: 20081010
  Serious: Yes (Other)
  Sender: FDA-Public Use
  Company Number: CN-JNJFOC-20080400740

PATIENT
  Age: 29 Year
  Sex: Female

DRUGS (2)
  1. RISPERDAL [Suspect]
     Indication: SCHIZOPHRENIA
     Route: 048
  2. ARIPIPRAZOLE [Concomitant]
     Indication: SCHIZOPHRENIA

REACTIONS (2)
  - BLOOD URINE PRESENT [None]
  - HAEMOGLOBIN DECREASED [None]
